FAERS Safety Report 7910000-2 (Version None)
Quarter: 2011Q4

REPORT INFORMATION
  Report Type: 
  Country: None (occurrence: None)
  Receive Date: 20111111
  Receipt Date: 20111108
  Transmission Date: 20120403
  Serious: Yes (Death)
  Sender: FDA-Public Use
  Company Number: US-CELGENEUS-163-21880-11111133

PATIENT
  Sex: Female

DRUGS (8)
  1. POTASSIUM [Concomitant]
     Dosage: 75 MILLIGRAM
     Route: 065
  2. METOPROLOL TARTRATE [Concomitant]
     Dosage: 100 MILLIGRAM
     Route: 065
  3. MAGNESIUM [Concomitant]
     Dosage: 200 MILLIGRAM
     Route: 065
  4. SYNTHROID [Concomitant]
     Dosage: 100 MICROGRAM
     Route: 065
  5. AMICAR [Concomitant]
     Dosage: 500 MILLIGRAM
     Route: 065
  6. REVLIMID [Suspect]
     Dosage: 5 MILLIGRAM
     Route: 048
     Dates: start: 20111012
  7. LISINOPRIL [Concomitant]
     Dosage: 10 MILLIGRAM
     Route: 065
  8. ACETAMINOPHEN [Concomitant]
     Dosage: 325 MILLIGRAM
     Route: 065

REACTIONS (1)
  - DEATH [None]
